FAERS Safety Report 15336454 (Version 2)
Quarter: 2019Q4

REPORT INFORMATION
  Report Type: Report from Study
  Country: CA (occurrence: CA)
  Receive Date: 20180830
  Receipt Date: 20191017
  Transmission Date: 20200122
  Serious: Yes (Other)
  Sender: FDA-Public Use
  Company Number: CA-TAKEDA-2018TUS025901

PATIENT
  Age: 59 Year
  Sex: Female

DRUGS (5)
  1. VEDOLIZUMAB [Suspect]
     Active Substance: VEDOLIZUMAB
     Indication: CROHN^S DISEASE
     Dosage: 300 MILLIGRAM
     Route: 042
     Dates: start: 20160609
  2. M-ESLON [Concomitant]
     Active Substance: MORPHINE SULFATE
     Dosage: 30 MG, QD
  3. VEDOLIZUMAB [Suspect]
     Active Substance: VEDOLIZUMAB
     Dosage: 300 MILLIGRAM
     Route: 042
  4. CIPROFLOXACIN. [Concomitant]
     Active Substance: CIPROFLOXACIN
     Indication: PAIN
     Dosage: UNK
  5. STATEX                             /00036302/ [Concomitant]
     Active Substance: MORPHINE SULFATE
     Dosage: UNK

REACTIONS (2)
  - Intestinal obstruction [Recovered/Resolved]
  - Faecal calprotectin increased [Unknown]

NARRATIVE: CASE EVENT DATE: 20180803
